FAERS Safety Report 14327624 (Version 7)
Quarter: 2020Q1

REPORT INFORMATION
  Report Type: Spontaneous
  Country: DE (occurrence: DE)
  Receive Date: 20171227
  Receipt Date: 20200223
  Transmission Date: 20200409
  Serious: Yes (Hospitalization)
  Sender: FDA-Public Use
  Company Number: PHHY2015DE177466

PATIENT
  Age: 60 Year
  Sex: Female
  Weight: 93 kg

DRUGS (19)
  1. VARGATEF [Suspect]
     Active Substance: NINTEDANIB
     Indication: LUNG ADENOCARCINOMA
     Dosage: 400 MG, QD (400 MG, EVERY DAY)
     Route: 048
     Dates: start: 20150319, end: 20150419
  2. VARGATEF [Suspect]
     Active Substance: NINTEDANIB
     Dosage: 200 MG, UNK
     Route: 048
     Dates: start: 20150319, end: 20150630
  3. DOCETAXEL. [Suspect]
     Active Substance: DOCETAXEL
     Indication: LUNG ADENOCARCINOMA
     Dosage: 100 MG/M2, BSA
     Route: 042
  4. BISOPROLOL [Concomitant]
     Active Substance: BISOPROLOL
     Indication: HYPERTENSION
     Dosage: 2 DF, QD (2 UG/LITRE)
     Route: 065
  5. NOVAMIN [Concomitant]
     Indication: PROPHYLAXIS
     Dosage: 500 MG, QD
     Route: 048
     Dates: start: 20140708
  6. VARGATEF [Suspect]
     Active Substance: NINTEDANIB
     Indication: NON-SMALL CELL LUNG CANCER
     Dosage: 400 MG, UNK
     Route: 048
     Dates: start: 20150319, end: 20150630
  7. ACC [Concomitant]
     Active Substance: ACETYLCYSTEINE
     Dosage: 1 DF, QD
     Route: 065
  8. DOCETAXEL. [Suspect]
     Active Substance: DOCETAXEL
     Indication: ADENOCARCINOMA
  9. VARGATEF [Suspect]
     Active Substance: NINTEDANIB
     Dosage: 400 MG, QD
     Route: 048
     Dates: start: 20150318, end: 20150419
  10. DOCETAXEL. [Suspect]
     Active Substance: DOCETAXEL
     Indication: NON-SMALL CELL LUNG CANCER
     Dosage: 100 MG/M2, BSA
     Route: 042
     Dates: start: 20150318, end: 20150408
  11. VARGATEF [Suspect]
     Active Substance: NINTEDANIB
     Indication: ADENOCARCINOMA
     Dosage: 200 MG, QD
     Route: 048
     Dates: start: 20150319, end: 20150419
  12. TROMCARDIN [Concomitant]
     Active Substance: MAGNESIUM ASPARTATE\POTASSIUM ASPARTATE
     Indication: ATRIAL FIBRILLATION
     Dosage: UNK
     Route: 065
  13. VARGATEF [Suspect]
     Active Substance: NINTEDANIB
     Indication: LUNG NEOPLASM MALIGNANT
     Dosage: 200 MG, UNK
     Route: 048
     Dates: end: 20150630
  14. VARGATEF [Suspect]
     Active Substance: NINTEDANIB
     Dosage: 200 MG, UNK
     Route: 048
     Dates: start: 20150318, end: 20150419
  15. VARGATEF [Suspect]
     Active Substance: NINTEDANIB
     Dosage: 400 MG, QD
     Route: 048
     Dates: start: 20150319, end: 20150630
  16. BISOPROLOL [Concomitant]
     Active Substance: BISOPROLOL
     Dosage: 1 ?G/L, QD
     Route: 065
  17. BISOPROLOL [Concomitant]
     Active Substance: BISOPROLOL
     Dosage: 1 DF, QD
     Route: 065
  18. ACC [Concomitant]
     Active Substance: ACETYLCYSTEINE
     Indication: ATRIAL FIBRILLATION
     Dosage: 3 UG, QD
     Route: 065
  19. DECORTIN [Concomitant]
     Active Substance: PREDNISONE
     Indication: PULMONARY FIBROSIS
     Dosage: UNK
     Route: 065

REACTIONS (6)
  - Oedema peripheral [Unknown]
  - Diarrhoea [Recovered/Resolved]
  - Stomatitis [Recovered/Resolved]
  - Abdominal pain [Recovered/Resolved]
  - Large intestine perforation [Recovered/Resolved]
  - Diverticulitis [Recovered/Resolved with Sequelae]

NARRATIVE: CASE EVENT DATE: 20150320
